FAERS Safety Report 9351396 (Version 3)
Quarter: 2013Q4

REPORT INFORMATION
  Report Type: Spontaneous
  Country: US (occurrence: US)
  Receive Date: 20130617
  Receipt Date: 20131014
  Transmission Date: 20140711
  Serious: Yes (Hospitalization, Other)
  Sender: FDA-Public Use
  Company Number: US-PFIZER INC-2013181011

PATIENT
  Age: 41 Year
  Sex: Male
  Weight: 63.49 kg

DRUGS (8)
  1. LYRICA [Suspect]
     Indication: PAIN IN EXTREMITY
     Dosage: 300 MG, 3X/DAY
     Dates: start: 201301, end: 201305
  2. LYRICA [Suspect]
     Indication: ARTHRALGIA
  3. KEPPRA [Suspect]
     Indication: CONVULSION
     Dosage: 500 MG DAILY
  4. PERCOCET [Concomitant]
     Indication: BACK PAIN
     Dosage: 10/325 MG, DAILY
  5. XANAX [Concomitant]
     Indication: ANXIETY
     Dosage: 2 MG, 3X/DAY
  6. XANAX [Concomitant]
     Indication: PANIC ATTACK
  7. SOMA [Concomitant]
     Indication: BACK PAIN
     Dosage: 350 MG, 3X/DAY
  8. SOMA [Concomitant]
     Indication: MUSCLE RELAXANT THERAPY

REACTIONS (1)
  - Convulsion [Recovering/Resolving]
